FAERS Safety Report 25530461 (Version 2)
Quarter: 2025Q3

REPORT INFORMATION
  Report Type: Spontaneous
  Country: US (occurrence: US)
  Receive Date: 20250708
  Receipt Date: 20250922
  Transmission Date: 20251020
  Serious: No
  Sender: SANOFI AVENTIS
  Company Number: US-SA-2025SA190713

PATIENT
  Age: 75 Year
  Sex: Male
  Weight: 86.36 kg

DRUGS (16)
  1. DUPIXENT [Suspect]
     Active Substance: DUPILUMAB
     Indication: Dermatitis atopic
     Route: 058
     Dates: start: 20250617, end: 20250617
  2. DUPIXENT [Suspect]
     Active Substance: DUPILUMAB
     Dosage: 300 MG, QOW
     Route: 058
     Dates: start: 202507
  3. FISH OIL [Concomitant]
     Active Substance: FISH OIL
  4. FAMOTIDINE [Concomitant]
     Active Substance: FAMOTIDINE
  5. AMLODIPINE BESYLATE [Concomitant]
     Active Substance: AMLODIPINE BESYLATE
  6. ISOSORBIDE MONONITRATE [Concomitant]
     Active Substance: ISOSORBIDE MONONITRATE
  7. ROSUVASTATIN CALCIUM [Concomitant]
     Active Substance: ROSUVASTATIN CALCIUM
  8. METOPROLOL SUCCINATE [Concomitant]
     Active Substance: METOPROLOL SUCCINATE
  9. CLOPIDOGREL [Concomitant]
     Active Substance: CLOPIDOGREL BISULFATE
  10. IRBESARTAN [Concomitant]
     Active Substance: IRBESARTAN
  11. ASPIRIN [Concomitant]
     Active Substance: ASPIRIN
  12. LATANOPROST [Concomitant]
     Active Substance: LATANOPROST
  13. CLOBETASOL [Concomitant]
     Active Substance: CLOBETASOL
  14. TRIAMCINOLONE ACETONIDE [Concomitant]
     Active Substance: TRIAMCINOLONE ACETONIDE
  15. DESONIDE [Concomitant]
     Active Substance: DESONIDE
  16. DESONIDE [Concomitant]
     Active Substance: DESONIDE

REACTIONS (2)
  - Skin infection [Unknown]
  - Pruritus [Not Recovered/Not Resolved]

NARRATIVE: CASE EVENT DATE: 20250101
